FAERS Safety Report 24569945 (Version 1)
Quarter: 2024Q4

REPORT INFORMATION
  Report Type: Spontaneous
  Country: US (occurrence: US)
  Receive Date: 20241031
  Receipt Date: 20241031
  Transmission Date: 20250115
  Serious: Yes (Other)
  Sender: NOVARTIS
  Company Number: US-002147023-NVSC2024US211426

PATIENT
  Sex: Male

DRUGS (1)
  1. PLUVICTO [Suspect]
     Active Substance: LUTETIUM LU-177 VIPIVOTIDE TETRAXETAN
     Indication: Product used for unknown indication
     Dosage: 7.4 MBQ (EVERY 6 WEEKS)
     Route: 042

REACTIONS (4)
  - Acute kidney injury [Unknown]
  - Hypoxia [Unknown]
  - Confusional state [Unknown]
  - Disorientation [Unknown]
